FAERS Safety Report 14313846 (Version 1)
Quarter: 2017Q4

REPORT INFORMATION
  Report Type: Spontaneous
  Country: FR (occurrence: FR)
  Receive Date: 20171221
  Receipt Date: 20171221
  Transmission Date: 20180321
  Serious: Yes (Other)
  Sender: FDA-Public Use
  Company Number: FR-PFIZER INC-2017535907

PATIENT
  Age: 45 Year
  Sex: Male
  Weight: 75 kg

DRUGS (1)
  1. OXALIPLATIN. [Suspect]
     Active Substance: OXALIPLATIN
     Indication: GASTRIC CANCER
     Dosage: UNK
     Route: 042
     Dates: start: 20170206, end: 20170206

REACTIONS (3)
  - Headache [Recovered/Resolved]
  - Tremor [Recovered/Resolved]
  - Tetany [Recovered/Resolved]

NARRATIVE: CASE EVENT DATE: 20170206
